FAERS Safety Report 5677737-X (Version None)
Quarter: 2008Q1

REPORT INFORMATION
  Report Type: 
  Country: None (occurrence: None)
  Receive Date: 20080324
  Receipt Date: 20070627
  Transmission Date: 20080703
  Serious: No
  Sender: FDA-Public Use
  Company Number: US-ABBOTT-07P-163-0373008-00

PATIENT
  Sex: Female

DRUGS (1)
  1. BIAXIN XL [Suspect]
     Indication: INFECTION
     Route: 048
     Dates: start: 20070615

REACTIONS (4)
  - ANXIETY [None]
  - CHEST DISCOMFORT [None]
  - DYSPNOEA [None]
  - INSOMNIA [None]
